FAERS Safety Report 7275702-2 (Version None)
Quarter: 2011Q1

REPORT INFORMATION
  Report Type: 
  Country: None (occurrence: None)
  Receive Date: 20110204
  Receipt Date: 20110202
  Transmission Date: 20110831
  Serious: Yes (Other)
  Sender: FDA-Public Use
  Company Number: US-PFIZER INC-2011024396

PATIENT
  Sex: Male
  Weight: 120.18 kg

DRUGS (5)
  1. TIKOSYN [Suspect]
     Indication: ATRIAL FIBRILLATION
     Dosage: 0.375 MG, 2X/DAY
     Route: 048
     Dates: start: 20101020
  2. DILTIAZEM [Concomitant]
     Indication: HYPERTENSION
     Dosage: 240+120MG, 2X/DAY
  3. KLOR-CON [Concomitant]
     Dosage: 20 MG, DAILY
  4. WARFARIN [Concomitant]
     Dosage: UNK MG, 2X/WEEK
  5. SIMVASTATIN [Concomitant]
     Indication: BLOOD CHOLESTEROL INCREASED
     Dosage: 20 MG, UNK

REACTIONS (2)
  - BLADDER CANCER [None]
  - JOINT SWELLING [None]
